FAERS Safety Report 4787324-3 (Version None)
Quarter: 2005Q3

REPORT INFORMATION
  Report Type: 
  Country: None (occurrence: None)
  Receive Date: 20050926
  Receipt Date: 20050722
  Transmission Date: 20060218
  Serious: No
  Sender: FDA-Public Use
  Company Number: 216389

PATIENT
  Age: 72 Year
  Sex: Male

DRUGS (2)
  1. AVASTIN [Suspect]
     Indication: COLORECTAL CANCER METASTATIC
     Dates: start: 20040901
  2. CHEMOTHERAPY NOS (ANTINEOPLASTIC AGENT NOS) [Concomitant]

REACTIONS (1)
  - DEPRESSION [None]
